FAERS Safety Report 13798424 (Version 1)
Quarter: 2017Q3

REPORT INFORMATION
  Report Type: Report from Study
  Country: None (occurrence: BR)
  Receive Date: 20170727
  Receipt Date: 20170727
  Transmission Date: 20171127
  Serious: Yes (Other)
  Sender: FDA-Public Use
  Company Number: BR-ABBVIE-17K-020-2050727-00

PATIENT
  Age: 77 Year
  Sex: Female
  Weight: 64 kg

DRUGS (3)
  1. VIDISIC [Concomitant]
     Indication: PRODUCT USED FOR UNKNOWN INDICATION
     Route: 061
  2. HUMIRA [Suspect]
     Active Substance: ADALIMUMAB
     Indication: RHEUMATOID ARTHRITIS
     Route: 058
     Dates: start: 20050101
  3. HYABAK [Concomitant]
     Active Substance: HYALURONATE SODIUM
     Indication: EYE INFLAMMATION

REACTIONS (6)
  - Ocular hyperaemia [Not Recovered/Not Resolved]
  - Fatigue [Recovering/Resolving]
  - Eye pruritus [Not Recovered/Not Resolved]
  - Purulent discharge [Not Recovered/Not Resolved]
  - Eyelid infection [Unknown]
  - Pain in extremity [Recovering/Resolving]

NARRATIVE: CASE EVENT DATE: 201706
